FAERS Safety Report 7942176-5 (Version None)
Quarter: 2011Q4

REPORT INFORMATION
  Report Type: 
  Country: None (occurrence: None)
  Receive Date: 20111123
  Receipt Date: 20111123
  Transmission Date: 20120403
  Serious: Yes (Other)
  Sender: FDA-Public Use
  Company Number: None

PATIENT
  Age: 55 Year
  Sex: Female
  Weight: 58.9676 kg

DRUGS (2)
  1. CIPROFLOXACIN HCL [Suspect]
     Indication: COUGH
     Dosage: 1 TABLET EVERY 12 HRS BY MOUTH
     Route: 048
     Dates: start: 20110926, end: 20110929
  2. CIPROFLOXACIN HCL [Suspect]
     Indication: DYSPNOEA
     Dosage: 1 TABLET EVERY 12 HRS BY MOUTH
     Route: 048
     Dates: start: 20110926, end: 20110929

REACTIONS (4)
  - TENDON INJURY [None]
  - HYPOAESTHESIA [None]
  - CONTUSION [None]
  - PARAESTHESIA [None]
